FAERS Safety Report 18641491 (Version 1)
Quarter: 2020Q4

REPORT INFORMATION
  Report Type: Other
  Country: GB (occurrence: GB)
  Receive Date: 20201221
  Receipt Date: 20201221
  Transmission Date: 20210114
  Serious: Yes (Death, Other)
  Sender: FDA-Public Use
  Company Number: GB-ASTELLAS-2020US044165

PATIENT
  Age: 73 Year
  Sex: Female

DRUGS (1)
  1. MICAFUNGIN. [Suspect]
     Active Substance: MICAFUNGIN SODIUM
     Indication: ANTIFUNGAL PROPHYLAXIS
     Route: 042
     Dates: start: 202009, end: 20200914

REACTIONS (5)
  - Anaphylactic reaction [Fatal]
  - Chest pain [Not Recovered/Not Resolved]
  - Sepsis [Not Recovered/Not Resolved]
  - Embolism venous [Unknown]
  - Transfusion-related acute lung injury [Not Recovered/Not Resolved]

NARRATIVE: CASE EVENT DATE: 20200914
